FAERS Safety Report 24431736 (Version 14)
Quarter: 2025Q4

REPORT INFORMATION
  Report Type: Spontaneous
  Country: EU (occurrence: EU)
  Receive Date: 20241014
  Receipt Date: 20251120
  Transmission Date: 20260118
  Serious: Yes (Life-Threatening, Other)
  Sender: AUROBINDO
  Company Number: EU-SA-2024SA281713

PATIENT
  Age: 16 Year
  Sex: Male
  Weight: 74.95 kg

DRUGS (100)
  1. CARBOPLATIN [Suspect]
     Active Substance: CARBOPLATIN
     Indication: Non-Hodgkin^s lymphoma
     Dosage: 1180 MILLIGRAM
  2. CARBOPLATIN [Suspect]
     Active Substance: CARBOPLATIN
     Dosage: 1120 MILLIGRAM 1TOTAL
  3. CARBOPLATIN [Suspect]
     Active Substance: CARBOPLATIN
     Dosage: 1180 MILLIGRAM
  4. HYDROCORTISONE [Suspect]
     Active Substance: HYDROCORTISONE
     Indication: Non-Hodgkin^s lymphoma
     Dosage: 10 MILLIGRAM TOTAL (
  5. HYDROCORTISONE [Suspect]
     Active Substance: HYDROCORTISONE
     Dosage: 10 MILLIGRAM
     Route: 065
  6. RITUXIMAB [Suspect]
     Active Substance: RITUXIMAB
     Indication: Non-Hodgkin^s lymphoma
     Dosage: 700 MILLIGRAM 1TOTAL
  7. RITUXIMAB [Suspect]
     Active Substance: RITUXIMAB
     Dosage: UNK
  8. RITUXIMAB [Suspect]
     Active Substance: RITUXIMAB
     Dosage: UNK
  9. ETOPOSIDE [Suspect]
     Active Substance: ETOPOSIDE
     Indication: Non-Hodgkin^s lymphoma
     Dosage: 186 MILLIGRAM
  10. ETOPOSIDE [Suspect]
     Active Substance: ETOPOSIDE
     Dosage: 176 MILLIGRAM 1TOTAL
  11. ETOPOSIDE [Suspect]
     Active Substance: ETOPOSIDE
     Dosage: 186 MILLIGRAM
     Route: 065
  12. METHOTREXATE [Suspect]
     Active Substance: METHOTREXATE
     Indication: Non-Hodgkin^s lymphoma
     Dosage: 15 MILLIGRAM 1TOTAL
  13. METHOTREXATE [Suspect]
     Active Substance: METHOTREXATE
     Dosage: 15 MILLIGRAM
  14. TOCILIZUMAB [Suspect]
     Active Substance: TOCILIZUMAB
     Indication: Non-Hodgkin^s lymphoma
     Dosage: 480 MILLIGRAM 1TOTAL
  15. TOCILIZUMAB [Suspect]
     Active Substance: TOCILIZUMAB
     Dosage: 460 MILLIGRAM
  16. IFOSFAMIDE [Suspect]
     Active Substance: IFOSFAMIDE
     Indication: Non-Hodgkin^s lymphoma
     Dosage: 5.6 GRAM
  17. IFOSFAMIDE [Suspect]
     Active Substance: IFOSFAMIDE
     Dosage: 5.3 GRAM
  18. IFOSFAMIDE [Suspect]
     Active Substance: IFOSFAMIDE
     Dosage: 5.6 GRAM
  19. IFOSFAMIDE [Suspect]
     Active Substance: IFOSFAMIDE
     Dosage: 5.6 GRAM
     Route: 065
  20. MESNA [Suspect]
     Active Substance: MESNA
     Indication: Non-Hodgkin^s lymphoma
     Dosage: 1200 MILLIGRAM
  21. MESNA [Suspect]
     Active Substance: MESNA
     Dosage: 5500 MILLIGRAM 1TOTAL
  22. MESNA [Suspect]
     Active Substance: MESNA
     Dosage: 6000 MILLIGRAM
     Route: 065
  23. HYDROMORPHONE [Suspect]
     Active Substance: HYDROMORPHONE
     Indication: Product used for unknown indication
     Dosage: 16 MILLIGRAM, AS NECESSARY
     Dates: start: 20240913, end: 20240918
  24. HYDROMORPHONE [Suspect]
     Active Substance: HYDROMORPHONE
     Dosage: 08 MILLIGRAM, AS NECESSARY
     Dates: start: 20240918, end: 20240921
  25. HYDROMORPHONE [Suspect]
     Active Substance: HYDROMORPHONE
     Dosage: 08 MILLIGRAM, AS NECESSARY
     Dates: start: 20240808, end: 20240823
  26. CYTARABINE [Suspect]
     Active Substance: CYTARABINE
     Indication: Non-Hodgkin^s lymphoma
     Dosage: 30 MILLIGRAM 1TOTAL
  27. CYTARABINE [Suspect]
     Active Substance: CYTARABINE
     Dosage: UNK
  28. OBINUTUZUMAB [Suspect]
     Active Substance: OBINUTUZUMAB
     Indication: Non-Hodgkin^s lymphoma
     Dosage: 100 MILLIGRAM (TOTAL)
  29. OBINUTUZUMAB [Suspect]
     Active Substance: OBINUTUZUMAB
     Dosage: 900 MILLIGRAM (TOTAL)
  30. OBINUTUZUMAB [Suspect]
     Active Substance: OBINUTUZUMAB
     Dosage: UNK MILLIGRAM
  31. LENOGRASTIM [Suspect]
     Active Substance: LENOGRASTIM
     Indication: Non-Hodgkin^s lymphoma
     Dosage: 300 MICROGRAM
  32. LENOGRASTIM [Suspect]
     Active Substance: LENOGRASTIM
     Dosage: 300 MICROGRAM
  33. LENOGRASTIM [Suspect]
     Active Substance: LENOGRASTIM
     Dosage: UNK
  34. LENOGRASTIM [Suspect]
     Active Substance: LENOGRASTIM
     Dosage: 300 MICROGRAM
  35. COLUMVI [Suspect]
     Active Substance: GLOFITAMAB-GXBM
     Indication: Non-Hodgkin^s lymphoma
     Dosage: 2.5 MILLIGRAM
  36. COLUMVI [Suspect]
     Active Substance: GLOFITAMAB-GXBM
     Dosage: UNK
  37. COLUMVI [Suspect]
     Active Substance: GLOFITAMAB-GXBM
     Dosage: UNK
  38. COLUMVI [Suspect]
     Active Substance: GLOFITAMAB-GXBM
     Dosage: UNK
  39. COLUMVI [Suspect]
     Active Substance: GLOFITAMAB-GXBM
     Dosage: 30 MILLIGRAM
  40. MABTHERA [Suspect]
     Active Substance: RITUXIMAB
     Indication: Non-Hodgkin^s lymphoma
     Dosage: 700 MILLIGRAM
  41. MABTHERA [Suspect]
     Active Substance: RITUXIMAB
     Dosage: UNK
  42. GLOFITAMAB [Suspect]
     Active Substance: GLOFITAMAB
     Indication: Non-Hodgkin^s lymphoma
     Dosage: 2.5 MILLIGRAM
  43. GLOFITAMAB [Suspect]
     Active Substance: GLOFITAMAB
     Dosage: 30 MILLIGRAM
  44. ACETAMINOPHEN [Concomitant]
     Active Substance: ACETAMINOPHEN
     Indication: Headache
     Dosage: 750 MILLIGRAM
  45. ACETAMINOPHEN [Concomitant]
     Active Substance: ACETAMINOPHEN
     Dosage: UNK
  46. CAFFEINE [Concomitant]
     Active Substance: CAFFEINE
     Indication: Headache
     Dosage: 300 MILLIGRAM, AS NECESSARY
     Dates: start: 20240727, end: 20240925
  47. AMPHOTERICIN B [Concomitant]
     Active Substance: AMPHOTERICIN B
     Indication: Product used for unknown indication
     Dosage: 100 MILLIGRAM, 3 TIMES A DAY
     Dates: start: 20240922
  48. CLEMASTINE [Concomitant]
     Active Substance: CLEMASTINE
     Indication: Product used for unknown indication
     Dosage: 1.6 MILLIGRAM, AS NECESSARY
     Dates: start: 20240828, end: 20240902
  49. PLATELETS [Concomitant]
     Active Substance: HUMAN PLATELET, ALLOGENIC
     Indication: Platelet count decreased
     Dosage: UNK(1 OTHER, PRN)
  50. HUMAN RED BLOOD CELL [Concomitant]
     Active Substance: HUMAN RED BLOOD CELL
     Indication: Anaemia
     Dosage: UNK(1 OTHER, PRN)
  51. TRANEXAMIC ACID [Concomitant]
     Active Substance: TRANEXAMIC ACID
     Indication: Epistaxis
     Dosage: UNK(1 OTHER, PRN)
  52. LEVETIRACETAM [Concomitant]
     Active Substance: LEVETIRACETAM
     Indication: Encephalopathy
     Dosage: 700 MILLIGRAM
     Route: 065
  53. LEVETIRACETAM [Concomitant]
     Active Substance: LEVETIRACETAM
     Dosage: 1500 MILLIGRAM, TWO TIMES A DAY
     Dates: start: 20240903, end: 20240922
  54. LEVETIRACETAM [Concomitant]
     Active Substance: LEVETIRACETAM
     Dosage: 1500 MILLIGRAM
     Route: 065
     Dates: start: 20240923, end: 20240923
  55. LEVETIRACETAM [Concomitant]
     Active Substance: LEVETIRACETAM
     Dosage: 500 MILLIGRAM, TWO TIMES A DAY
     Dates: start: 20240805, end: 20240901
  56. LEVETIRACETAM [Concomitant]
     Active Substance: LEVETIRACETAM
     Dosage: 1000 MILLIGRAM, TWO TIMES A DAY
     Dates: start: 20240902, end: 20240902
  57. LEVETIRACETAM [Concomitant]
     Active Substance: LEVETIRACETAM
     Indication: Encephalopathy
     Dosage: 1500 MILLIGRAM, ONCE A DAY
     Dates: start: 20240924
  58. MELATONIN [Concomitant]
     Active Substance: MELATONIN
     Indication: Product used for unknown indication
     Dosage: 5 MILLIGRAM, ONCE A DAY
     Dates: start: 20240806, end: 20240913
  59. ONDANSETRON [Concomitant]
     Active Substance: ONDANSETRON
     Indication: Prophylaxis of nausea and vomiting
     Dosage: 8 MILLIGRAM, 3 TIMES A DAY
     Dates: start: 20240902, end: 20240902
  60. ONDANSETRON [Concomitant]
     Active Substance: ONDANSETRON
     Dosage: 8 MILLIGRAM, 3 TIMES A DAY
     Dates: start: 20240903, end: 20240906
  61. ONDANSETRON [Concomitant]
     Active Substance: ONDANSETRON
     Dosage: 8 MILLIGRAM, 3 TIMES A DAY
     Dates: start: 20240907, end: 20240907
  62. ONDANSETRON [Concomitant]
     Active Substance: ONDANSETRON
     Dosage: 8 MILLIGRAM, 3 TIMES A DAY
     Dates: start: 20240902, end: 20240907
  63. SULFAMETHOXAZOLE\TRIMETHOPRIM [Concomitant]
     Active Substance: SULFAMETHOXAZOLE\TRIMETHOPRIM
     Indication: Product used for unknown indication
     Dosage: 640 MILLIGRAM, EVERY WEEK
     Dates: start: 20240726, end: 20240913
  64. SULFAMETHOXAZOLE\TRIMETHOPRIM [Concomitant]
     Active Substance: SULFAMETHOXAZOLE\TRIMETHOPRIM
     Dosage: 640 MILLIGRAM, 1, WEEK (320 MILLIGRAM, BIW)
  65. PANTOPRAZOLE [Concomitant]
     Active Substance: PANTOPRAZOLE
     Indication: Product used for unknown indication
     Dosage: 40 MILLIGRAM, ONCE A DAY
     Dates: start: 20240908, end: 20240915
  66. PANTOPRAZOLE [Concomitant]
     Active Substance: PANTOPRAZOLE
     Dosage: 40 MILLIGRAM, ONCE A DAY
     Dates: start: 20240917, end: 20240923
  67. PANTOPRAZOLE [Concomitant]
     Active Substance: PANTOPRAZOLE
     Indication: Product used for unknown indication
     Dosage: 40 MILLIGRAM, ONCE A DAY
     Dates: start: 20240728, end: 20240907
  68. METHYLPREDNISOLONE [Concomitant]
     Active Substance: METHYLPREDNISOLONE
     Indication: Product used for unknown indication
     Dosage: 120 MILLIGRAM
     Dates: start: 20240428, end: 20240428
  69. Tranexamsaure eberth [Concomitant]
     Indication: Product used for unknown indication
     Dosage: UNK
     Route: 065
  70. DEXAMETHASONE [Concomitant]
     Active Substance: DEXAMETHASONE
     Indication: Product used for unknown indication
     Dosage: UNK
     Route: 065
  71. DIMENHYDRINATE [Concomitant]
     Active Substance: DIMENHYDRINATE
     Indication: Prophylaxis of nausea and vomiting
     Dosage: 50 MILLIGRAM, AS NECESSARY
     Dates: start: 20240906, end: 20240906
  72. DIMENHYDRINATE [Concomitant]
     Active Substance: DIMENHYDRINATE
     Indication: Prophylaxis of nausea and vomiting
     Dosage: 62 MILLIGRAM, AS NECESSARY
     Dates: start: 20240906, end: 20240906
  73. MEROPENEM [Concomitant]
     Active Substance: MEROPENEM
     Indication: Febrile neutropenia
     Dosage: 2 GRAM, ONCE A DAY
     Dates: start: 20240902, end: 20240902
  74. MEROPENEM [Concomitant]
     Active Substance: MEROPENEM
     Dosage: 2 GRAM, 3 TIMES A DAY
     Dates: start: 20240815, end: 20240901
  75. TEICOPLANIN [Concomitant]
     Active Substance: TEICOPLANIN
     Indication: Cytokine release syndrome
     Dosage: 400 MILLIGRAM, TWO TIMES A DAY
     Route: 065
     Dates: start: 20240830, end: 20240830
  76. TEICOPLANIN [Concomitant]
     Active Substance: TEICOPLANIN
     Dosage: 400 MILLIGRAM, TWO TIMES A DAY
     Route: 065
     Dates: start: 20240831, end: 20240902
  77. NALOXONE HYDROCHLORIDE [Concomitant]
     Active Substance: NALOXONE HYDROCHLORIDE
     Indication: Product used for unknown indication
     Dosage: 0.34 MILLIGRAM, ONCE A DAY
     Dates: start: 20240808, end: 20240820
  78. NALOXONE HYDROCHLORIDE [Concomitant]
     Active Substance: NALOXONE HYDROCHLORIDE
     Dosage: 0.17 MILLIGRAM, ONCE A DAY
     Dates: start: 20240820, end: 20240821
  79. FILGRASTIM [Concomitant]
     Active Substance: FILGRASTIM
     Indication: Neutropenia
     Dosage: 300 MICROGRAM, ONCE A DAY
     Dates: start: 20240806, end: 20240806
  80. FILGRASTIM [Concomitant]
     Active Substance: FILGRASTIM
     Dosage: 300 MICROGRAM, ONCE A DAY
     Dates: start: 20240808, end: 20240812
  81. FILGRASTIM [Concomitant]
     Active Substance: FILGRASTIM
     Dosage: 300 MICROGRAM, ONCE A DAY
     Dates: start: 20240813, end: 20240823
  82. FILGRASTIM [Concomitant]
     Active Substance: FILGRASTIM
     Dosage: 300 MICROGRAM, ONCE A DAY
     Dates: start: 20240825, end: 20240826
  83. FILGRASTIM [Concomitant]
     Active Substance: FILGRASTIM
     Dosage: 300 MICROGRAM, ONCE A DAY
     Dates: start: 20240912, end: 20240927
  84. FILGRASTIM [Concomitant]
     Active Substance: FILGRASTIM
     Dosage: 600 MICROGRAM, ONCE A DAY
     Dates: start: 20240928
  85. TRAMADOL [Concomitant]
     Active Substance: TRAMADOL
     Indication: Pain
     Dosage: 50 MILLIGRAM, AS NECESSARY
     Dates: start: 20240829, end: 20240829
  86. TRAMADOL [Concomitant]
     Active Substance: TRAMADOL
     Dosage: 50 MILLIGRAM, AS NECESSARY
     Dates: start: 20240830, end: 20241001
  87. TRAMADOL [Concomitant]
     Active Substance: TRAMADOL
     Indication: Pain
     Dosage: 50 MILLIGRAM, AS NECESSARY
     Dates: start: 20240911, end: 20240913
  88. TRAMADOL [Concomitant]
     Active Substance: TRAMADOL
     Indication: Pain
     Dosage: 50 MILLIGRAM, AS NECESSARY
     Dates: start: 20240929, end: 20240930
  89. TRANEXAMIC ACID [Concomitant]
     Active Substance: TRANEXAMIC ACID
     Indication: Epistaxis
     Dosage: 500 MILLIGRAM, 3 TIMES A DAY
     Dates: start: 20240814, end: 20240820
  90. TRANEXAMIC ACID [Concomitant]
     Active Substance: TRANEXAMIC ACID
     Dosage: 500 MILLIGRAM, TWO TIMES A DAY
     Dates: start: 20240821, end: 20240821
  91. IBUPROFEN [Concomitant]
     Active Substance: IBUPROFEN
     Indication: Pain
     Dosage: 40 MILLIGRAM, AS NECESSARY
     Dates: start: 20240905, end: 20240905
  92. METAMIZOLE [Concomitant]
     Active Substance: METAMIZOLE
     Indication: Product used for unknown indication
     Dosage: 750 MILLIGRAM, AS NECESSARY
     Dates: start: 20240815, end: 20240916
  93. MICAFUNGIN [Concomitant]
     Active Substance: MICAFUNGIN SODIUM
     Indication: Product used for unknown indication
     Dosage: 400 MILLIGRAM WEEK
     Dates: start: 20240809, end: 20240830
  94. MICAFUNGIN [Concomitant]
     Active Substance: MICAFUNGIN SODIUM
     Dosage: 400 MILLIGRAM WEEK
     Dates: start: 20240910, end: 20240913
  95. MICAFUNGIN [Concomitant]
     Active Substance: MICAFUNGIN SODIUM
     Dosage: 400 MILLIGRAM WEEK
     Dates: start: 20240918, end: 20240918
  96. MICAFUNGIN [Concomitant]
     Active Substance: MICAFUNGIN SODIUM
     Dosage: 400 MILLIGRAM WEEK
     Dates: start: 20240910, end: 20240913
  97. MICAFUNGIN [Concomitant]
     Active Substance: MICAFUNGIN SODIUM
     Dosage: 400 MILLIGRAM WEEK
     Dates: start: 20240916, end: 20240917
  98. TRAMADOL [Concomitant]
     Active Substance: TRAMADOL
     Indication: Pain
     Dosage: 100 MILLIGRAM, TWO TIMES A DAY
     Dates: start: 20240930
  99. PLATELETS [Concomitant]
     Active Substance: HUMAN PLATELET, ALLOGENIC
     Indication: Platelet count decreased
     Dosage: UNK, AS NECESSARY
     Dates: start: 20250804
  100. HUMAN RED BLOOD CELL [Concomitant]
     Active Substance: HUMAN RED BLOOD CELL
     Indication: Anaemia
     Dosage: UNK, AS NECESSARY
     Dates: start: 20250805

REACTIONS (3)
  - Sepsis [Recovered/Resolved]
  - Febrile neutropenia [Not Recovered/Not Resolved]
  - Off label use [Unknown]

NARRATIVE: CASE EVENT DATE: 20240916
